FAERS Safety Report 6884996-4 (Version None)
Quarter: 2010Q3

REPORT INFORMATION
  Report Type: 
  Country: None (occurrence: None)
  Receive Date: 20100729
  Receipt Date: 20071025
  Transmission Date: 20110219
  Serious: No
  Sender: FDA-Public Use
  Company Number: US-PFIZER INC-2007090705

PATIENT
  Age: 35 Year
  Sex: Male

DRUGS (6)
  1. CELEBREX [Suspect]
     Indication: PAIN
     Dates: start: 20070101, end: 20070101
  2. CELEBREX [Suspect]
     Indication: INFLAMMATION
  3. LYRICA [Suspect]
     Indication: PAIN
     Dates: start: 20070101
  4. OPIOIDS [Suspect]
  5. CYMBALTA [Concomitant]
     Indication: DEPRESSION
  6. ULTRACET [Concomitant]

REACTIONS (2)
  - JOINT SWELLING [None]
  - OEDEMA [None]
